FAERS Safety Report 9813131 (Version 1)
Quarter: 2014Q1

REPORT INFORMATION
  Report Type: Spontaneous
  Country: US (occurrence: US)
  Receive Date: 20140113
  Receipt Date: 20140113
  Transmission Date: 20141002
  Serious: No
  Sender: FDA-Public Use
  Company Number: US-GE HEALTHCARE MEDICAL DIAGNOSTICS-DATS-PR-1312S-0025

PATIENT
  Sex: Female

DRUGS (2)
  1. DATSCAN [Suspect]
     Indication: PRODUCT USED FOR UNKNOWN INDICATION
     Dates: start: 20131219, end: 20131219
  2. DATSCAN [Suspect]
     Indication: DIAGNOSTIC PROCEDURE

REACTIONS (1)
  - Drug ineffective [Recovered/Resolved]
